FAERS Safety Report 20461749 (Version 1)
Quarter: 2022Q1

REPORT INFORMATION
  Report Type: Spontaneous
  Country: US (occurrence: None)
  Receive Date: 20220211
  Receipt Date: 20220211
  Transmission Date: 20220423
  Serious: No
  Sender: FDA-Public Use
  Company Number: None

PATIENT
  Sex: Male

DRUGS (1)
  1. TALTZ [Suspect]
     Active Substance: IXEKIZUMAB
     Indication: Ankylosing spondylitis
     Dosage: FREQUENCY : MONTHLY;?
     Route: 058
     Dates: start: 2021, end: 202201

REACTIONS (6)
  - Therapeutic product effect incomplete [None]
  - Dizziness [None]
  - Headache [None]
  - Pain [None]
  - Pyrexia [None]
  - Therapy cessation [None]
